FAERS Safety Report 8523342-7 (Version None)
Quarter: 2012Q3

REPORT INFORMATION
  Report Type: 
  Country: None (occurrence: None)
  Receive Date: 20120713
  Receipt Date: 20120713
  Transmission Date: 20120928
  Serious: Yes (Hospitalization)
  Sender: FDA-Public Use
  Company Number: None

PATIENT
  Age: 67 Year
  Sex: Male
  Weight: 79.1 kg

DRUGS (1)
  1. METHADONE HYDROCHLORIDE [Suspect]
     Dosage: 10 MG PO
     Route: 048
     Dates: start: 20110913, end: 20111007

REACTIONS (4)
  - NAUSEA [None]
  - WEIGHT DECREASED [None]
  - CONSTIPATION [None]
  - VOMITING [None]
